FAERS Safety Report 8346952-9 (Version None)
Quarter: 2012Q1

REPORT INFORMATION
  Report Type: 
  Country: None (occurrence: None)
  Receive Date: 20120315
  Receipt Date: 20110512
  Transmission Date: 20120608
  Serious: No
  Sender: FDA-Public Use
  Company Number: PHHY2011US35476

PATIENT
  Age: 36 Year
  Sex: Female

DRUGS (6)
  1. ATENOLOL [Concomitant]
  2. SUAMTRIPTAN (SUMATRIPTAN) [Concomitant]
  3. DEPAKOTE [Concomitant]
  4. ALBUTEROL [Concomitant]
  5. GILENYA [Suspect]
     Indication: MULTIPLE SCLEROSIS
     Dosage: 0.5 MG, DAILY, ORAL
     Route: 048
     Dates: start: 20110322
  6. FAMOTIDINE [Concomitant]

REACTIONS (1)
  - TREMOR [None]
